FAERS Safety Report 21782492 (Version 1)
Quarter: 2022Q4

REPORT INFORMATION
  Report Type: Spontaneous
  Country: US (occurrence: None)
  Receive Date: 20221223
  Receipt Date: 20221223
  Transmission Date: 20230113
  Serious: No
  Sender: FDA-Public Use
  Company Number: None

PATIENT
  Age: 43 Year
  Sex: Female

DRUGS (1)
  1. TREMFYA [Suspect]
     Active Substance: GUSELKUMAB
     Indication: Psoriatic arthropathy
     Dosage: OTHER FREQUENCY : Q 8WKS;?
     Route: 058
     Dates: start: 202207

REACTIONS (3)
  - Product leakage [None]
  - Product dose omission issue [None]
  - Device malfunction [None]

NARRATIVE: CASE EVENT DATE: 20221222
